FAERS Safety Report 10524377 (Version 1)
Quarter: 2014Q4

REPORT INFORMATION
  Report Type: Spontaneous
  Country: US (occurrence: None)
  Receive Date: 20141015
  Receipt Date: 20141015
  Transmission Date: 20150528
  Serious: Yes (Other)
  Sender: FDA-Public Use
  Company Number: 2014-US-011801

PATIENT
  Age: 72 Year
  Sex: Female
  Weight: 79.4 kg

DRUGS (7)
  1. VITAMINS NOS (VITAMINS NOS) [Concomitant]
     Active Substance: VITAMINS
  2. XYREM [Suspect]
     Active Substance: SODIUM OXYBATE
     Indication: SLEEP APNOEA SYNDROME
     Route: 048
     Dates: start: 201201, end: 2012
  3. NEXIUM [Concomitant]
     Active Substance: ESOMEPRAZOLE MAGNESIUM
  4. SINUS (CHLORPHENAMINE MALEATE, PARACETAMOL, PSEUDOEPHEDRINE HYDROCHLORIDE) [Concomitant]
  5. AMLODIPINE (AMLODIPINE BESYLATE) [Concomitant]
  6. XYREM [Suspect]
     Active Substance: SODIUM OXYBATE
     Indication: INSOMNIA
     Route: 048
     Dates: start: 201201, end: 2012
  7. HYDROCHLOROTHIAZIDE (HYDROCHLOROTHIAZIDE) [Concomitant]
     Active Substance: HYDROCHLOROTHIAZIDE

REACTIONS (2)
  - Off label use [None]
  - Breast cancer recurrent [None]

NARRATIVE: CASE EVENT DATE: 201406
